FAERS Safety Report 9885873 (Version 4)
Quarter: 2014Q2

REPORT INFORMATION
  Report Type: Spontaneous
  Country: US (occurrence: US)
  Receive Date: 20140210
  Receipt Date: 20140527
  Transmission Date: 20141212
  Serious: Yes (Hospitalization)
  Sender: FDA-Public Use
  Company Number: US-GLAXOSMITHKLINE-A0889413A

PATIENT
  Sex: Male
  Weight: 142.3 kg

DRUGS (5)
  1. AVANDIA [Suspect]
     Indication: DIABETES MELLITUS
     Dosage: 4MG PER DAY
     Route: 048
     Dates: start: 200410, end: 200807
  2. ZOCOR [Concomitant]
     Dates: end: 200807
  3. METFORMIN [Concomitant]
  4. GLYBURIDE [Concomitant]
  5. NEURONTIN [Concomitant]

REACTIONS (4)
  - Myocardial infarction [Not Recovered/Not Resolved]
  - Cardiac failure congestive [Unknown]
  - Ischaemic cardiomyopathy [Unknown]
  - Acute pulmonary oedema [Unknown]
